FAERS Safety Report 5703437-3 (Version None)
Quarter: 2008Q2

REPORT INFORMATION
  Report Type: 
  Country: None (occurrence: None)
  Receive Date: 20080411
  Receipt Date: 20080403
  Transmission Date: 20081010
  Serious: Yes (Other)
  Sender: FDA-Public Use
  Company Number: US-PFIZER INC-2008029552

PATIENT
  Sex: Female

DRUGS (8)
  1. CELEBREX [Suspect]
  2. PREDNISONE [Concomitant]
  3. CYMBALTA [Concomitant]
  4. INSULIN [Concomitant]
  5. ALL OTHER THERAPEUTIC PRODUCTS [Concomitant]
  6. ALLOPURINOL [Concomitant]
  7. PROTINEX [Concomitant]
  8. VASOTEC [Concomitant]

REACTIONS (9)
  - CONFUSIONAL STATE [None]
  - CONVULSION [None]
  - HEADACHE [None]
  - HYPERTENSION [None]
  - LETHARGY [None]
  - PYREXIA [None]
  - SUICIDAL IDEATION [None]
  - VERTIGO [None]
  - VISUAL DISTURBANCE [None]
